FAERS Safety Report 16347234 (Version 1)
Quarter: 2019Q2

REPORT INFORMATION
  Report Type: Spontaneous
  Country: JP (occurrence: JP)
  Receive Date: 20190523
  Receipt Date: 20190523
  Transmission Date: 20190711
  Serious: Yes (Other)
  Sender: FDA-Public Use
  Company Number: JP-ASTRAZENECA-2019SE76213

PATIENT
  Age: 79 Year
  Sex: Male

DRUGS (2)
  1. NEODOPASTON [Concomitant]
     Active Substance: CARBIDOPA\LEVODOPA
  2. SEROQUEL [Suspect]
     Active Substance: QUETIAPINE FUMARATE
     Indication: DEMENTIA WITH LEWY BODIES
     Dosage: DAYTIME AND EVENING
     Route: 048

REACTIONS (2)
  - Neuroleptic malignant syndrome [Unknown]
  - Off label use [Unknown]
